FAERS Safety Report 5644318-3 (Version None)
Quarter: 2008Q1

REPORT INFORMATION
  Report Type: 
  Country: None (occurrence: None)
  Receive Date: 20080229
  Receipt Date: 20080218
  Transmission Date: 20080703
  Serious: Yes (Life-Threatening, Hospitalization)
  Sender: FDA-Public Use
  Company Number: ES-BAYER-200813689GPV

PATIENT
  Sex: Female

DRUGS (6)
  1. GLUMIDA [Suspect]
     Indication: DIABETES MELLITUS
     Route: 048
     Dates: end: 20070901
  2. NOVOLOG MIX 70/30 [Interacting]
     Indication: DIABETES MELLITUS
     Route: 058
     Dates: end: 20070901
  3. AMARYL [Interacting]
     Indication: DIABETES MELLITUS
     Route: 048
     Dates: end: 20070901
  4. COROPRES [Concomitant]
     Indication: HYPERTENSION
     Route: 048
  5. COZAAR [Concomitant]
     Indication: HYPERTENSION
     Route: 048
  6. ORFIDAL [Concomitant]
     Indication: DRUG USE FOR UNKNOWN INDICATION
     Route: 048

REACTIONS (1)
  - HYPOGLYCAEMIA [None]
